FAERS Safety Report 4947061-9 (Version None)
Quarter: 2006Q1

REPORT INFORMATION
  Report Type: 
  Country: None (occurrence: None)
  Receive Date: 20060317
  Receipt Date: 20060303
  Transmission Date: 20060701
  Serious: Yes (Death, Hospitalization)
  Sender: FDA-Public Use
  Company Number: GBWYE448603MAR06

PATIENT
  Sex: Female

DRUGS (2)
  1. ENBREL [Suspect]
     Indication: DRUG USE FOR UNKNOWN INDICATION
     Route: 058
     Dates: start: 20051227, end: 20060101
  2. HUMIRA [Concomitant]
     Dosage: UNKNOWN
     Dates: start: 20050701, end: 20051201

REACTIONS (1)
  - SEPSIS [None]
